FAERS Safety Report 5318126-7 (Version None)
Quarter: 2007Q2

REPORT INFORMATION
  Report Type: 
  Country: None (occurrence: None)
  Receive Date: 20070507
  Receipt Date: 20070419
  Transmission Date: 20071010
  Serious: Yes (Other)
  Sender: FDA-Public Use
  Company Number: JP-ROCHE-490869

PATIENT
  Age: 21 Year
  Sex: Female
  Weight: 58 kg

DRUGS (4)
  1. TAMIFLU [Suspect]
     Route: 048
     Dates: start: 20070326, end: 20070326
  2. TAMIFLU [Suspect]
     Route: 048
     Dates: start: 20070327, end: 20070327
  3. RUPOCK [Suspect]
     Indication: PYREXIA
     Route: 048
     Dates: start: 20070326, end: 20070327
  4. COUGHCODE [Concomitant]
     Route: 048
     Dates: start: 20070326, end: 20070327

REACTIONS (1)
  - GRAND MAL CONVULSION [None]
